FAERS Safety Report 8596287-4 (Version None)
Quarter: 2012Q3

REPORT INFORMATION
  Report Type: 
  Country: None (occurrence: None)
  Receive Date: 20120815
  Receipt Date: 20120810
  Transmission Date: 20120928
  Serious: Yes (Other)
  Sender: FDA-Public Use
  Company Number: BR-BAYER-2012-082401

PATIENT

DRUGS (1)
  1. MOXIFLOXACIN [Suspect]
     Route: 048

REACTIONS (2)
  - EMPHYSEMA [None]
  - HYPERSENSITIVITY [None]
